FAERS Safety Report 6932042-6 (Version None)
Quarter: 2010Q3

REPORT INFORMATION
  Report Type: 
  Country: None (occurrence: None)
  Receive Date: 20100812
  Receipt Date: 20090507
  Transmission Date: 20110219
  Serious: No
  Sender: FDA-Public Use
  Company Number: 2009-01098

PATIENT
  Age: 27 Year
  Sex: Female
  Weight: 70.3075 kg

DRUGS (2)
  1. ZICAM EXTREME CONGESTION RELIEF [Suspect]
     Dosage: Q 8-12 HOURS X 10 DAYS
     Dates: start: 20090501, end: 20090511
  2. NYQUIL [Concomitant]

REACTIONS (2)
  - AGEUSIA [None]
  - ANOSMIA [None]
